FAERS Safety Report 8791489 (Version 3)
Quarter: 2013Q1

REPORT INFORMATION
  Report Type: Spontaneous
  Country: US (occurrence: None)
  Receive Date: 20120912
  Receipt Date: 20121108
  Transmission Date: 20140127
  Serious: Yes (Other)
  Sender: FDA-Public Use
  Company Number: DSA_59406_2012

PATIENT
  Sex: Male

DRUGS (1)
  1. XENAZINE 12.5 MG (NOT SPECIFIED) [Suspect]
     Indication: DYSKINESIA
     Dosage: EVERY MORNING AND 12.5MG EVERY EVENING ORAL)
     Route: 048
     Dates: start: 201206, end: 201208

REACTIONS (3)
  - Depression [None]
  - Indifference [None]
  - Mental status changes [None]
